FAERS Safety Report 7914976-9 (Version None)
Quarter: 2011Q4

REPORT INFORMATION
  Report Type: 
  Country: None (occurrence: None)
  Receive Date: 20111115
  Receipt Date: 20111104
  Transmission Date: 20120403
  Serious: Yes (Hospitalization)
  Sender: FDA-Public Use
  Company Number: US-BAYER-2011-052334

PATIENT
  Age: 35 Year
  Sex: Female
  Weight: 76 kg

DRUGS (8)
  1. DOCUSATE SODIUM [Concomitant]
     Indication: CONSTIPATION
     Dosage: 100 MG, BID
     Route: 048
  2. MEDROXYPROGESTERONE [Concomitant]
     Dosage: 10 MG, UNK
     Route: 048
  3. RETIN-A [Concomitant]
     Dosage: 0025 %, UNK
     Route: 061
  4. COLACE [Concomitant]
  5. YASMIN [Suspect]
     Dosage: UNK
     Route: 048
     Dates: start: 20080401, end: 20091019
  6. ALDARA [Concomitant]
     Dosage: 5 %, UNK
     Route: 061
  7. IRON [Concomitant]
     Dosage: 160 MG, ONCE
     Route: 048
  8. ACETAMINOPHEN W/ CODEINE [Concomitant]
     Indication: PAIN
     Dosage: 300 30 MG 1 DF, Q4HR PRN
     Route: 048

REACTIONS (8)
  - HEADACHE [None]
  - ATELECTASIS [None]
  - EMOTIONAL DISORDER [None]
  - PULMONARY EMBOLISM [None]
  - ASTHENIA [None]
  - PAIN [None]
  - INJURY [None]
  - DISTURBANCE IN ATTENTION [None]
